FAERS Safety Report 6903294-3 (Version None)
Quarter: 2010Q3

REPORT INFORMATION
  Report Type: 
  Country: None (occurrence: None)
  Receive Date: 20100803
  Receipt Date: 20080904
  Transmission Date: 20110219
  Serious: Yes (Other)
  Sender: FDA-Public Use
  Company Number: US-PFIZER INC-2008060297

PATIENT
  Sex: Male
  Weight: 97.5 kg

DRUGS (5)
  1. LYRICA [Suspect]
     Indication: NERVE INJURY
     Route: 048
     Dates: start: 20080710
  2. CYMBALTA [Concomitant]
  3. CLONAZEPAM [Concomitant]
  4. FLEXERIL [Concomitant]
  5. MORPHINE SULFATE [Concomitant]

REACTIONS (3)
  - DISORIENTATION [None]
  - HALLUCINATION, AUDITORY [None]
  - PYREXIA [None]
